FAERS Safety Report 8771590 (Version 1)
Quarter: 2012Q4

REPORT INFORMATION
  Report Type: 
  Country: DE (occurrence: DE)
  Receive Date: 20120906
  Receipt Date: 20120906
  Transmission Date: 20130627
  Serious: Yes (Other)
  Sender: FDA-Public Use
  Company Number: DE-ACTELION-A-CH2012-69671

PATIENT
  Age: 69 Year
  Sex: Female
  Weight: 64 kg

DRUGS (11)
  1. TRACLEER [Suspect]
     Indication: SYSTEMIC SCLEROSIS
     Dosage: 125 mg, bid
     Route: 048
     Dates: start: 20120705
  2. TRACLEER [Suspect]
     Dosage: 62.5 mg, od
     Route: 048
     Dates: start: 20120315, end: 20120509
  3. TRACLEER [Suspect]
     Dosage: 62.5 mg, bid
     Route: 048
     Dates: start: 20120510, end: 20120704
  4. PROTAPHANE [Concomitant]
  5. ACTRAPID [Concomitant]
  6. L-THYROXIN [Concomitant]
  7. PANTOZOL [Concomitant]
  8. QUENSYL [Concomitant]
  9. DOMPERIDON [Concomitant]
  10. ZINKOROTAT [Concomitant]
  11. ZOLPIDEM [Concomitant]

REACTIONS (1)
  - Herpes zoster [Recovering/Resolving]
